FAERS Safety Report 24903127 (Version 1)
Quarter: 2025Q1

REPORT INFORMATION
  Report Type: Spontaneous
  Country: FR (occurrence: FR)
  Receive Date: 20250130
  Receipt Date: 20250130
  Transmission Date: 20250409
  Serious: Yes (Hospitalization)
  Sender: RANBAXY
  Company Number: FR-SUN PHARMACEUTICAL INDUSTRIES LTD-2025RR-491044

PATIENT
  Age: 47 Year
  Sex: Female
  Weight: 67 kg

DRUGS (6)
  1. QUETIAPINE [Suspect]
     Active Substance: QUETIAPINE
     Indication: Depression
     Dosage: 50 MILLIGRAM, QD
     Route: 048
     Dates: start: 20241114, end: 20241119
  2. VENLAFAXINE [Concomitant]
     Active Substance: VENLAFAXINE HYDROCHLORIDE
     Indication: Depression
     Dosage: 37.5 MILLIGRAM, QD
     Route: 048
     Dates: start: 20241114
  3. ZOPICLONE [Concomitant]
     Active Substance: ZOPICLONE
     Indication: Poor quality sleep
     Dosage: 7.5 MILLIGRAM, QD
     Route: 048
  4. METHADONE [Concomitant]
     Active Substance: METHADONE HYDROCHLORIDE
     Indication: Drug withdrawal syndrome
     Dosage: 20 MILLIGRAM, QD
     Route: 048
  5. PREGABALIN [Concomitant]
     Active Substance: PREGABALIN
     Indication: Generalised anxiety disorder
     Dosage: 300 MILLIGRAM, QD
     Route: 048
  6. BUSPIRONE [Concomitant]
     Active Substance: BUSPIRONE HYDROCHLORIDE
     Indication: Generalised anxiety disorder
     Dosage: 300 MILLIGRAM, QD
     Route: 048
     Dates: start: 20241114

REACTIONS (2)
  - Oedema peripheral [Recovered/Resolved]
  - Eyelid oedema [Recovered/Resolved]

NARRATIVE: CASE EVENT DATE: 20241118
